FAERS Safety Report 4342138-3 (Version None)
Quarter: 2004Q1

REPORT INFORMATION
  Report Type: 
  Country: None (occurrence: None)
  Receive Date: 20040329
  Receipt Date: 20040204
  Transmission Date: 20041129
  Serious: No
  Sender: FDA-Public Use
  Company Number: 04P-163-0249364-00

PATIENT
  Age: 66 Year
  Sex: Female
  Weight: 63.5036 kg

DRUGS (17)
  1. HUMIRA [Suspect]
     Indication: RHEUMATOID ARTHRITIS
     Dosage: 40 MG 1 IN 2 WK, SUBUCTANEOUS
     Route: 058
     Dates: start: 20031201
  2. PRAVASTATIN SODIUM [Concomitant]
  3. . [Concomitant]
  4. PRAVASTATIN SODIUM [Concomitant]
  5. MECLIZINE [Concomitant]
  6. PREDNISONE [Concomitant]
  7. ISOSORBIDE MONONITRATE [Concomitant]
  8. SERTRALINE HYDROCHLORIDE [Concomitant]
  9. FOLIC ACID [Concomitant]
  10. LEXAPRO [Concomitant]
  11. PANTOPRAZOLE [Concomitant]
  12. LISINOPRIL [Concomitant]
  13. AMOXICILLIN [Concomitant]
  14. ROSGLITAZONE MALEATE [Concomitant]
  15. GLARCINE [Concomitant]
  16. HYDROCO-PAP-10 [Concomitant]
  17. DETROL LA [Concomitant]

REACTIONS (1)
  - INJECTION SITE BURNING [None]
